FAERS Safety Report 16065527 (Version 8)
Quarter: 2019Q3

REPORT INFORMATION
  Report Type: Report from Study
  Country: KR (occurrence: KR)
  Receive Date: 20190313
  Receipt Date: 20190820
  Transmission Date: 20191004
  Serious: Yes (Other)
  Sender: FDA-Public Use
  Company Number: KR-009507513-1901KOR002518

PATIENT
  Sex: Female

DRUGS (14)
  1. PEMBROLIZUMAB. [Suspect]
     Active Substance: PEMBROLIZUMAB
     Dosage: QUANTITY: 2; DAYS: 1
     Dates: start: 20190423, end: 20190423
  2. PEMBROLIZUMAB. [Suspect]
     Active Substance: PEMBROLIZUMAB
     Indication: OVARIAN EPITHELIAL CANCER STAGE IV
     Dosage: UNK
     Dates: start: 20181019, end: 20181019
  3. PEMBROLIZUMAB. [Suspect]
     Active Substance: PEMBROLIZUMAB
     Dosage: QUANTITY: 1; DAYS: 1
     Dates: start: 20190117, end: 20190117
  4. PEMBROLIZUMAB. [Suspect]
     Active Substance: PEMBROLIZUMAB
     Dosage: QUANTITY: 2; DAYS: 1
     Dates: start: 20190605, end: 20190605
  5. PEMBROLIZUMAB. [Suspect]
     Active Substance: PEMBROLIZUMAB
     Dosage: QUANTITY: 2; DAYS: 1
     Dates: start: 20190807, end: 20190807
  6. PEMBROLIZUMAB. [Suspect]
     Active Substance: PEMBROLIZUMAB
     Dosage: UNK
     Dates: start: 20181109, end: 20181109
  7. PEMBROLIZUMAB. [Suspect]
     Active Substance: PEMBROLIZUMAB
     Dosage: QUANTITY: 2; DAYS: 1
     Dates: start: 20190212, end: 20190212
  8. PEMBROLIZUMAB. [Suspect]
     Active Substance: PEMBROLIZUMAB
     Dosage: QUANTITY: 2; DAYS: 1
     Dates: start: 20190308, end: 20190308
  9. PEMBROLIZUMAB. [Suspect]
     Active Substance: PEMBROLIZUMAB
     Dosage: UNK
     Dates: start: 20181130, end: 20181130
  10. PEMBROLIZUMAB. [Suspect]
     Active Substance: PEMBROLIZUMAB
     Dosage: QUANTITY: 2; DAYS: 1
     Dates: start: 20181225, end: 20181225
  11. PEMBROLIZUMAB. [Suspect]
     Active Substance: PEMBROLIZUMAB
     Dosage: QUANTITY: 2; DAYS: 1
     Dates: start: 20190402, end: 20190402
  12. PEMBROLIZUMAB. [Suspect]
     Active Substance: PEMBROLIZUMAB
     Dosage: QUANTITY: 2; DAYS: 1
     Dates: start: 20190515, end: 20190515
  13. PEMBROLIZUMAB. [Suspect]
     Active Substance: PEMBROLIZUMAB
     Dosage: QUANTITY: 2; DAYS: 1
     Dates: start: 20190626, end: 20190626
  14. PEMBROLIZUMAB. [Suspect]
     Active Substance: PEMBROLIZUMAB
     Dosage: QUANTITY: 2; DAYS: 1
     Dates: start: 20190717, end: 20190717

REACTIONS (4)
  - Product use in unapproved indication [Unknown]
  - Inappropriate schedule of product administration [Unknown]
  - Ureteral stent insertion [Unknown]
  - Catheter placement [Unknown]

NARRATIVE: CASE EVENT DATE: 20181019
